FAERS Safety Report 4845953-2 (Version None)
Quarter: 2005Q4

REPORT INFORMATION
  Report Type: 
  Country: None (occurrence: None)
  Receive Date: 20051202
  Receipt Date: 20051202
  Transmission Date: 20060501
  Serious: Yes (Other)
  Sender: FDA-Public Use
  Company Number: None

PATIENT
  Age: 27 Year
  Sex: Female

DRUGS (3)
  1. CIPRO [Suspect]
     Dosage: 500 MG BID -TUBAL
     Dates: start: 20051021
  2. CIPRO [Suspect]
     Dosage: 500 MG BID -TUBAL
     Dates: start: 20051116
  3. KEFLEX [Concomitant]

REACTIONS (2)
  - DERMATITIS EXFOLIATIVE [None]
  - GENERALISED OEDEMA [None]
